FAERS Safety Report 7468612-9 (Version None)
Quarter: 2011Q2

REPORT INFORMATION
  Report Type: 
  Country: None (occurrence: None)
  Receive Date: 20110510
  Receipt Date: 20110209
  Transmission Date: 20111010
  Serious: No
  Sender: FDA-Public Use
  Company Number: US-BAYER-2011-013195

PATIENT

DRUGS (2)
  1. LEVAQUIN [Concomitant]
  2. AVELOX [Suspect]

REACTIONS (1)
  - TENDONITIS [None]
